FAERS Safety Report 5151955-1 (Version None)
Quarter: 2006Q4

REPORT INFORMATION
  Report Type: 
  Country: None (occurrence: None)
  Receive Date: 20061109
  Receipt Date: 20061027
  Transmission Date: 20070319
  Serious: Yes (Life-Threatening, Hospitalization, Disabling)
  Sender: FDA-Public Use
  Company Number: 2006131996

PATIENT
  Age: 31 Year
  Sex: Male

DRUGS (6)
  1. LYRICA [Suspect]
     Indication: ANXIETY
     Dosage: 350 MG, ORAL
     Route: 048
     Dates: start: 20060906
  2. CLOZAPINE [Suspect]
     Indication: PSYCHOTIC DISORDER
     Dosage: 700 MG, ORAL
     Route: 048
     Dates: start: 20060313
  3. CYSTRIN (OXYBUTYNIN) [Suspect]
     Indication: URINARY INCONTINENCE
     Dosage: 10 MG, ORAL
     Route: 048
     Dates: start: 20060531
  4. VALPROATE SODIUM [Concomitant]
  5. OXAZEPAM [Concomitant]
  6. DISULFIRAM [Concomitant]

REACTIONS (1)
  - MEGACOLON [None]
